FAERS Safety Report 8285837-3 (Version None)
Quarter: 2012Q2

REPORT INFORMATION
  Report Type: 
  Country: None (occurrence: None)
  Receive Date: 20120413
  Receipt Date: 20120403
  Transmission Date: 20120825
  Serious: Yes (Hospitalization, Other)
  Sender: FDA-Public Use
  Company Number: CA-ELI_LILLY_AND_COMPANY-CA201201005724

PATIENT
  Age: 76 Year
  Sex: Female

DRUGS (10)
  1. AMLODIPINE [Concomitant]
  2. CODEINE [Concomitant]
  3. TYLENOL ARTHRITIS [Concomitant]
  4. FORTEO [Suspect]
     Indication: OSTEOPOROSIS
     Dosage: 20 UG, QD
     Route: 058
     Dates: start: 20110502
  5. IRBESARTAN [Concomitant]
  6. WARFARIN SODIUM [Concomitant]
  7. VITAMIN D [Concomitant]
  8. ASPIRIN [Concomitant]
  9. FENOFIBRATE [Concomitant]
  10. SYNTHROID [Concomitant]

REACTIONS (5)
  - FRACTURE NONUNION [None]
  - ATRIAL FIBRILLATION [None]
  - DEVICE FAILURE [None]
  - ASTHENIA [None]
  - FRACTURE [None]
